FAERS Safety Report 13581718 (Version 1)
Quarter: 2017Q2

REPORT INFORMATION
  Report Type: Spontaneous
  Country: NO (occurrence: NO)
  Receive Date: 20170525
  Receipt Date: 20170525
  Transmission Date: 20170830
  Serious: Yes (Other)
  Sender: FDA-Public Use
  Company Number: NO-PFIZER INC-2017223214

PATIENT
  Age: 25 Year
  Sex: Female

DRUGS (6)
  1. PREDNISOLONE. [Suspect]
     Active Substance: PREDNISOLONE
     Indication: LEUKOCYTOSIS
     Dosage: 1 DF, WEEKLY
     Route: 037
     Dates: start: 20160919, end: 20161115
  2. PREDNISOLONE. [Suspect]
     Active Substance: PREDNISOLONE
     Indication: ACUTE LYMPHOCYTIC LEUKAEMIA
     Dosage: 2 DF, WEEKLY; INITIALLY UNTIL SPINAL FLUID IS BLANK
     Route: 037
     Dates: start: 20160628, end: 201609
  3. CYTARABINE. [Suspect]
     Active Substance: CYTARABINE
     Indication: ACUTE LYMPHOCYTIC LEUKAEMIA
     Dosage: 1 DF, WEEKLY
     Route: 037
     Dates: start: 20160919, end: 20161115
  4. METHOTREXATE MEDAC [Suspect]
     Active Substance: METHOTREXATE SODIUM
     Indication: ACUTE LYMPHOCYTIC LEUKAEMIA
     Dosage: 2 DF, WEEKLY: INITIALLY UNTIL SPINAL FLUID IS BLANK
     Route: 037
     Dates: start: 20160628, end: 20160918
  5. METHOTREXATE MEDAC [Suspect]
     Active Substance: METHOTREXATE SODIUM
     Indication: LEUKOCYTOSIS
     Dosage: 1 DF, WEEKLY
     Route: 037
     Dates: start: 20160919, end: 20161115
  6. CYTARABINE. [Suspect]
     Active Substance: CYTARABINE
     Indication: LEUKOCYTOSIS
     Dosage: 2 DF, WEEKLY; INITIALLY UNTIL SPINAL FLUID IS BLANK
     Route: 037
     Dates: start: 20160628, end: 201609

REACTIONS (2)
  - Myelopathy [Unknown]
  - Toxicity to various agents [None]

NARRATIVE: CASE EVENT DATE: 20161115
